FAERS Safety Report 6683127-3 (Version None)
Quarter: 2010Q2

REPORT INFORMATION
  Report Type: 
  Country: None (occurrence: None)
  Receive Date: 20100413
  Receipt Date: 20100330
  Transmission Date: 20101027
  Serious: Yes (Hospitalization)
  Sender: FDA-Public Use
  Company Number: 009466

PATIENT
  Age: 84 Year
  Sex: Male

DRUGS (4)
  1. KEPPRA [Suspect]
     Indication: EPILEPSY
     Dosage: 250 MG BID ORAL; 1000 MG ORAL
     Route: 048
     Dates: start: 20091223, end: 20100102
  2. HALOPERIDOL [Suspect]
     Indication: AGITATION
     Dosage: DAILY DOSE OF 10 DROPS ORAL
     Route: 048
     Dates: start: 20090801, end: 20100106
  3. LOSARTAN POTASSIUM [Concomitant]
  4. SINTROM [Concomitant]

REACTIONS (4)
  - AGITATION [None]
  - CEREBRAL ATROPHY [None]
  - DRUG INTERACTION [None]
  - SOMNOLENCE [None]
